FAERS Safety Report 8281788-9 (Version None)
Quarter: 2012Q2

REPORT INFORMATION
  Report Type: 
  Country: None (occurrence: None)
  Receive Date: 20120413
  Receipt Date: 20120403
  Transmission Date: 20120825
  Serious: Yes (Hospitalization, Other)
  Sender: FDA-Public Use
  Company Number: PHHY2012BR029806

PATIENT
  Sex: Female
  Weight: 80 kg

DRUGS (7)
  1. WARFARIN SODIUM [Concomitant]
     Indication: THROMBOSIS PROPHYLAXIS
     Dosage: 0.5 DF, ON FOUR DAYS OF THE WEEK
     Dates: start: 20110801
  2. DIOVAN [Suspect]
     Indication: HYPERTENSION
     Dosage: 80 MG, ONE TABLET IN THE MORNING AND ONE TABLET AT NIGHT
     Route: 048
  3. SYNTHROID [Concomitant]
     Indication: THYROID HORMONE REPLACEMENT THERAPY
     Dosage: 112 UG, ONE TABLET DAILY
     Route: 048
  4. WARFARIN SODIUM [Concomitant]
     Dosage: 1 DF, ON THREE DAYS OF THE WEEK
     Dates: start: 20110801
  5. CLORANA [Concomitant]
     Indication: HYPERTENSION
     Dosage: 25 MG, ONE TABLET DAILY
     Route: 048
  6. METOPROLOL SUCCINATE [Concomitant]
     Indication: HYPERTENSION
     Dosage: 1 DF, DAILY
  7. DIOVAN [Suspect]
     Dosage: 160 MG, ONE TABLET DAILY
     Route: 048

REACTIONS (5)
  - BONE PAIN [None]
  - SPINAL HAEMATOMA [None]
  - ARTHRALGIA [None]
  - HYPERTENSION [None]
  - THROMBOSIS [None]
